FAERS Safety Report 26212469 (Version 1)
Quarter: 2025Q4

REPORT INFORMATION
  Report Type: Spontaneous
  Country: EU (occurrence: EU)
  Receive Date: 20251230
  Receipt Date: 20251230
  Transmission Date: 20260117
  Serious: Yes (Hospitalization, Other)
  Sender: AUROBINDO
  Company Number: EU-AFSSAPS-TS2024000278

PATIENT
  Age: 80 Year
  Sex: Male
  Weight: 93 kg

DRUGS (3)
  1. DAPTOMYCIN [Suspect]
     Active Substance: DAPTOMYCIN
     Indication: Device related infection
     Dosage: UNK UNK, ONCE A DAY
     Dates: start: 20240201, end: 20240220
  2. PRAVASTATIN [Suspect]
     Active Substance: PRAVASTATIN
     Indication: Dyslipidaemia
     Dosage: 40 MILLIGRAM, ONCE A DAY
     Route: 061
     Dates: end: 20240220
  3. ALFUZOSIN [Suspect]
     Active Substance: ALFUZOSIN
     Indication: Product used for unknown indication
     Dosage: 2.5 MILLIGRAM, ONCE A DAY
     Route: 061
     Dates: end: 20240220

REACTIONS (2)
  - Interstitial lung disease [Recovering/Resolving]
  - Eosinophilia [Recovering/Resolving]

NARRATIVE: CASE EVENT DATE: 20240221
